FAERS Safety Report 9372466 (Version 1)
Quarter: 2013Q2

REPORT INFORMATION
  Report Type: Report from Study
  Country: US (occurrence: US)
  Receive Date: 20130627
  Receipt Date: 20130627
  Transmission Date: 20140414
  Serious: Yes (Death)
  Sender: FDA-Public Use
  Company Number: US-MYLANLABS-2012S1025251

PATIENT
  Age: 57 Year
  Sex: Male

DRUGS (12)
  1. CLOZAPINE TABLETS [Suspect]
     Indication: PSYCHOTIC DISORDER
     Route: 048
     Dates: start: 2012, end: 2012
  2. CLOZAPINE TABLETS [Suspect]
     Indication: SCHIZOPHRENIA
     Route: 048
     Dates: start: 2012, end: 2012
  3. ALLOPURINOL [Concomitant]
  4. AMIODARONE [Concomitant]
  5. DEPAKOTE ER [Concomitant]
  6. PEPCID [Concomitant]
  7. LEVOTHYROXINE [Concomitant]
  8. TOPROL [Concomitant]
  9. PROTONIX [Concomitant]
  10. SENNA PLUS /00142201/ [Concomitant]
     Dosage: 2 HS
  11. ZOLOFT [Concomitant]
  12. TRAZODONE [Concomitant]

REACTIONS (1)
  - Leukaemia [Fatal]
